FAERS Safety Report 4715096-7 (Version None)
Quarter: 2005Q2

REPORT INFORMATION
  Report Type: 
  Country: None (occurrence: None)
  Receive Date: 20050630
  Receipt Date: 20050513
  Transmission Date: 20051028
  Serious: Yes (Hospitalization)
  Sender: FDA-Public Use
  Company Number: 213243

PATIENT
  Age: 52 Year
  Sex: Male

DRUGS (8)
  1. AVASTIN [Suspect]
     Indication: COLORECTAL CANCER METASTATIC
     Dosage: 400MG, UNK, INTRAVENOUS
     Route: 042
     Dates: start: 20041006
  2. IRINOTECAN HCL [Concomitant]
  3. 5-FU (FLUOROURACIL) [Concomitant]
  4. LEUCOVORIN CALCIUM [Concomitant]
  5. COUMADIN [Concomitant]
  6. PREVACID [Concomitant]
  7. VICODIN (HYDROCODONE BITARTRATE, ACETAMINOPHEN) [Concomitant]
  8. EFFEXOR [Concomitant]

REACTIONS (1)
  - INFUSION RELATED REACTION [None]
